FAERS Safety Report 22313647 (Version 1)
Quarter: 2023Q2

REPORT INFORMATION
  Report Type: Spontaneous
  Country: US (occurrence: US)
  Receive Date: 20230512
  Receipt Date: 20230512
  Transmission Date: 20230721
  Serious: No
  Sender: FDA-Public Use
  Company Number: US-SANOFI-01607790

PATIENT
  Age: 43 Year
  Sex: Female

DRUGS (4)
  1. DUPIXENT [Suspect]
     Active Substance: DUPILUMAB
     Indication: Bronchitis chronic
     Dosage: 300 MG, QOW
     Dates: start: 202304
  2. DUPIXENT [Suspect]
     Active Substance: DUPILUMAB
     Indication: Asthma
  3. RINVOQ [Concomitant]
     Active Substance: UPADACITINIB
  4. METHOTREXATE [Concomitant]
     Active Substance: METHOTREXATE

REACTIONS (3)
  - Contusion [Unknown]
  - Product use in unapproved indication [Unknown]
  - Product preparation error [Unknown]

NARRATIVE: CASE EVENT DATE: 20230101
